FAERS Safety Report 21600700 (Version 5)
Quarter: 2022Q4

REPORT INFORMATION
  Report Type: Report from Study
  Country: US (occurrence: US)
  Receive Date: 20221116
  Receipt Date: 20221222
  Transmission Date: 20230112
  Serious: Yes (Other)
  Sender: FDA-Public Use
  Company Number: US-002147023-NVSC2022US253359

PATIENT
  Age: 77 Year
  Sex: Male

DRUGS (3)
  1. ENTRESTO [Suspect]
     Active Substance: SACUBITRIL\VALSARTAN
     Indication: Product used for unknown indication
     Dosage: UNK, QD (STARTED 6 MONTHS AGO)
     Route: 065
  2. ENTRESTO [Suspect]
     Active Substance: SACUBITRIL\VALSARTAN
     Dosage: UNK, BID
     Route: 065
  3. LISINOPRIL [Suspect]
     Active Substance: LISINOPRIL
     Indication: Product used for unknown indication
     Dosage: UNK (FOR 10 YEARS)
     Route: 065

REACTIONS (6)
  - Haemorrhage [Unknown]
  - Cough [Not Recovered/Not Resolved]
  - Secretion discharge [Unknown]
  - Nasal septum deviation [Unknown]
  - Inappropriate schedule of product administration [Unknown]
  - Contraindicated product administered [Unknown]
